FAERS Safety Report 24789365 (Version 1)
Quarter: 2024Q4

REPORT INFORMATION
  Report Type: Spontaneous
  Country: US (occurrence: US)
  Receive Date: 20241230
  Receipt Date: 20241230
  Transmission Date: 20250114
  Serious: Yes (Hospitalization, Other)
  Sender: EPIC PHARM
  Company Number: US-EPICPHARMA-US-2024EPCLIT01594

PATIENT
  Age: 49 Year
  Sex: Female

DRUGS (4)
  1. CARBOPLATIN [Suspect]
     Active Substance: CARBOPLATIN
     Indication: Hodgkin^s disease
     Route: 065
  2. IFOSFAMIDE [Suspect]
     Active Substance: IFOSFAMIDE
     Indication: Hodgkin^s disease
     Route: 065
  3. BRENTUXIMAB [Suspect]
     Active Substance: BRENTUXIMAB
     Indication: Hodgkin^s disease
     Route: 065
  4. ETOPOSIDE [Suspect]
     Active Substance: ETOPOSIDE
     Indication: Hodgkin^s disease
     Route: 065

REACTIONS (8)
  - Tubulointerstitial nephritis [Recovered/Resolved]
  - Acute kidney injury [Recovered/Resolved]
  - Myelosuppression [Unknown]
  - Pancytopenia [Unknown]
  - Nausea [Unknown]
  - Vomiting [Unknown]
  - Drug interaction [Unknown]
  - Product use in unapproved indication [Unknown]
